FAERS Safety Report 9109904 (Version 2)
Quarter: 2015Q1

REPORT INFORMATION
  Report Type: Report from Study
  Country: US (occurrence: US)
  Receive Date: 20130222
  Receipt Date: 20150213
  Transmission Date: 20150721
  Serious: Yes (Other)
  Sender: FDA-Public Use
  Company Number: US-ROCHE-1193871

PATIENT
  Age: 78 Year
  Sex: Female

DRUGS (1)
  1. LUCENTIS [Suspect]
     Active Substance: RANIBIZUMAB
     Indication: PRODUCT USED FOR UNKNOWN INDICATION
     Route: 065

REACTIONS (1)
  - Cerebrovascular accident [Unknown]

NARRATIVE: CASE EVENT DATE: 201212
